FAERS Safety Report 8829241 (Version 2)
Quarter: 2012Q4

REPORT INFORMATION
  Report Type: 
  Country: GB (occurrence: GB)
  Receive Date: 20121008
  Receipt Date: 20121011
  Transmission Date: 20130627
  Serious: Yes (Death, Hospitalization)
  Sender: FDA-Public Use
  Company Number: PHFR2012GB005268

PATIENT
  Sex: Male

DRUGS (17)
  1. GLIVEC [Suspect]
     Indication: GRAFT VERSUS HOST DISEASE
     Dosage: 400 mg, daily
     Route: 048
  2. GLIVEC [Suspect]
     Dosage: 400 mg, daily
     Route: 048
     Dates: start: 20120217
  3. GLIVEC [Suspect]
     Dosage: 400 mg, daily
     Route: 048
     Dates: start: 20120315
  4. AMLODIPINE [Concomitant]
     Dosage: 5 mg, UNK
     Route: 048
  5. ACICLOVIR [Concomitant]
     Dosage: 200 mg, UNK
     Route: 048
  6. FOLIC ACID [Concomitant]
     Dosage: 5 mg, UNK
     Route: 048
  7. OMEPRAZOLE [Concomitant]
     Dosage: 20 mg, UNK
     Route: 048
  8. PREGABALIN [Concomitant]
     Dosage: 75 mg, UNK
  9. IPRATROPIUM BROMIDE [Concomitant]
     Dosage: 500 mg, BID
     Route: 048
  10. MORPHINE SULFATE [Concomitant]
     Dosage: 2.5- 5 mg, PRN
     Route: 048
  11. VORICONAZOLE [Concomitant]
     Dosage: 200 mg, BID
     Route: 048
  12. AZITHROMYCIN [Concomitant]
     Dosage: 500 mg, QD
     Route: 048
  13. ADCAL-D3 [Concomitant]
     Route: 048
  14. PARACETAMOL [Concomitant]
     Dosage: 1 g, PRN
  15. SALBUTAMOL [Concomitant]
     Dosage: 5 mg, QD
  16. CYCLOSPORINE [Concomitant]
     Dosage: 100 mg, UNK
     Route: 048
  17. CYCLOSPORINE [Concomitant]
     Dosage: 125 mg, UNK
     Route: 048

REACTIONS (4)
  - Parainfluenzae virus infection [Fatal]
  - Graft versus host disease [Fatal]
  - Dyspnoea [Fatal]
  - Staphylococcal infection [Unknown]
